FAERS Safety Report 5673956-7 (Version None)
Quarter: 2008Q1

REPORT INFORMATION
  Report Type: 
  Country: None (occurrence: None)
  Receive Date: 20080319
  Receipt Date: 20080319
  Transmission Date: 20080703
  Serious: Yes (Other)
  Sender: FDA-Public Use
  Company Number: None

PATIENT
  Sex: Female
  Weight: 60.782 kg

DRUGS (3)
  1. MORPHINE [Suspect]
     Indication: POSTOPERATIVE CARE
     Dates: start: 20000101
  2. FENTANYL TRANSDERMAL SYSTEM [Suspect]
     Indication: MYOSITIS
     Dates: start: 20061001
  3. FENTANYL TRANSDERMAL SYSTEM [Suspect]
     Indication: RADIATION INJURY
     Dates: start: 20061001

REACTIONS (4)
  - CHEST PAIN [None]
  - DYSPNOEA [None]
  - POST PROCEDURAL COMPLICATION [None]
  - PRURITUS [None]
